FAERS Safety Report 5621796-7 (Version None)
Quarter: 2008Q1

REPORT INFORMATION
  Report Type: 
  Country: None (occurrence: None)
  Receive Date: 20080204
  Receipt Date: 20080128
  Transmission Date: 20080703
  Serious: Yes (Other)
  Sender: FDA-Public Use
  Company Number: 2008002447

PATIENT
  Age: 63 Year
  Sex: Female
  Weight: 59 kg

DRUGS (2)
  1. ROGAINE [Suspect]
     Indication: ALOPECIA
     Dosage: DROPPER FULL, 2 TIMES PER DAY, TOPICAL
     Route: 061
     Dates: start: 20080115, end: 20080125
  2. NIFEDIPINE [Concomitant]

REACTIONS (4)
  - AURICULAR SWELLING [None]
  - EYE SWELLING [None]
  - SKIN IRRITATION [None]
  - SWELLING FACE [None]
